FAERS Safety Report 7594894-9 (Version None)
Quarter: 2011Q3

REPORT INFORMATION
  Report Type: 
  Country: None (occurrence: None)
  Receive Date: 20110707
  Receipt Date: 20110624
  Transmission Date: 20111222
  Serious: Yes (Other)
  Sender: FDA-Public Use
  Company Number: GB-ELI_LILLY_AND_COMPANY-GB201106007073

PATIENT
  Age: 15 Year
  Sex: Female
  Weight: 44 kg

DRUGS (3)
  1. OLANZAPINE [Suspect]
     Indication: ANXIETY
     Dosage: 2.5 MG, UNK
     Route: 048
     Dates: start: 20110604, end: 20110605
  2. THIAMINE [Concomitant]
  3. MULTI-VITAMINS [Concomitant]

REACTIONS (4)
  - DIZZINESS [None]
  - OFF LABEL USE [None]
  - FATIGUE [None]
  - HYPOTENSION [None]
